FAERS Safety Report 25922544 (Version 1)
Quarter: 2025Q4

REPORT INFORMATION
  Report Type: Spontaneous
  Country: US (occurrence: US)
  Receive Date: 20251015
  Receipt Date: 20251015
  Transmission Date: 20260117
  Serious: Yes (Other)
  Sender: EPIC PHARM
  Company Number: US-EPICPHARMA-US-2025EPCSPO01136

PATIENT
  Age: 76 Year
  Sex: Male

DRUGS (9)
  1. RIFAMPIN [Suspect]
     Active Substance: RIFAMPIN
     Indication: Disseminated mycobacterium avium complex infection
     Route: 065
  2. ETHAMBUTOL HYDROCHLORIDE [Suspect]
     Active Substance: ETHAMBUTOL HYDROCHLORIDE
     Indication: Disseminated mycobacterium avium complex infection
     Route: 065
  3. AZITHROMYCIN [Suspect]
     Active Substance: AZITHROMYCIN
     Indication: Disseminated mycobacterium avium complex infection
     Route: 065
  4. AMIKACIN [Suspect]
     Active Substance: AMIKACIN
     Indication: Disseminated mycobacterium avium complex infection
     Route: 042
  5. MOXIFLOXACIN [Suspect]
     Active Substance: MOXIFLOXACIN
     Indication: Disseminated mycobacterium avium complex infection
     Route: 065
  6. LINEZOLID [Suspect]
     Active Substance: LINEZOLID
     Indication: Disseminated mycobacterium avium complex infection
     Route: 065
  7. TEDIZOLID [Concomitant]
     Active Substance: TEDIZOLID
     Route: 065
  8. OMADACYCLINE [Concomitant]
     Active Substance: OMADACYCLINE
     Route: 065
     Dates: start: 202502
  9. BEDAQUILINE [Concomitant]
     Active Substance: BEDAQUILINE
     Route: 065
     Dates: start: 20250925

REACTIONS (3)
  - Neuropathy peripheral [Unknown]
  - Therapeutic product effect incomplete [Unknown]
  - Product use in unapproved indication [Unknown]

NARRATIVE: CASE EVENT DATE: 20240101
